FAERS Safety Report 9374653 (Version 4)
Quarter: 2014Q1

REPORT INFORMATION
  Report Type: Spontaneous
  Country: US (occurrence: US)
  Receive Date: 20130628
  Receipt Date: 20140210
  Transmission Date: 20141002
  Serious: Yes (Death, Other)
  Sender: FDA-Public Use
  Company Number: US-PFIZER INC-2013189714

PATIENT
  Age: 77 Year
  Sex: Female

DRUGS (3)
  1. REVATIO [Suspect]
     Indication: PULMONARY HYPERTENSION
     Dosage: 80 MG (4 TABLETS OF 20 MG), 3X/DAY
     Route: 048
     Dates: start: 20070314
  2. LETAIRIS [Concomitant]
     Indication: PULMONARY HYPERTENSION
     Dosage: 10 MG, DAILY
     Dates: start: 20080404
  3. LETAIRIS [Concomitant]
     Indication: PULMONARY ARTERIAL HYPERTENSION

REACTIONS (3)
  - Disease progression [Fatal]
  - Pulmonary hypertension [Fatal]
  - Cardiac failure [Fatal]
